FAERS Safety Report 10314612 (Version 2)
Quarter: 2014Q3

REPORT INFORMATION
  Report Type: Report from Study
  Country: US (occurrence: US)
  Receive Date: 20140718
  Receipt Date: 20140815
  Transmission Date: 20150326
  Serious: Yes (Hospitalization)
  Sender: FDA-Public Use
  Company Number: US-JNJFOC-20140708789

PATIENT
  Sex: Female

DRUGS (16)
  1. LEVOTHYROXINE [Concomitant]
     Active Substance: LEVOTHYROXINE
     Indication: HYPOTHYROIDISM
  2. VITAMIN [Concomitant]
     Active Substance: VITAMINS
  3. METOPROLOL [Concomitant]
     Active Substance: METOPROLOL
  4. SYSTANE [Concomitant]
     Active Substance: HYPROMELLOSE 2910 (4000 MPA.S)
     Route: 047
  5. INVOKANA [Suspect]
     Active Substance: CANAGLIFLOZIN
     Indication: TYPE 2 DIABETES MELLITUS
     Route: 065
     Dates: start: 2013, end: 2013
  6. ASPIRIN. [Concomitant]
     Active Substance: ASPIRIN
  7. BUMETANIDE. [Concomitant]
     Active Substance: BUMETANIDE
  8. VITAMIN C [Concomitant]
     Active Substance: ASCORBIC ACID
  9. ISOSORBIDE MONONITRATE. [Concomitant]
     Active Substance: ISOSORBIDE MONONITRATE
  10. POTASSIUM CHLORIDE. [Concomitant]
     Active Substance: POTASSIUM CHLORIDE
  11. VITAMIN B12 [Concomitant]
     Active Substance: CYANOCOBALAMIN
  12. ATORVASTATIN [Concomitant]
     Active Substance: ATORVASTATIN
  13. HUMALOG [Concomitant]
     Active Substance: INSULIN LISPRO
  14. TOPIRAMATE. [Concomitant]
     Active Substance: TOPIRAMATE
  15. TRAMADOL [Concomitant]
     Active Substance: TRAMADOL
  16. CALCIUM [Concomitant]
     Active Substance: CALCIUM

REACTIONS (6)
  - Paraesthesia [Unknown]
  - Malaise [Unknown]
  - Dizziness [Unknown]
  - Weight decreased [Unknown]
  - Diarrhoea [Unknown]
  - Feeling abnormal [Unknown]

NARRATIVE: CASE EVENT DATE: 2013
